FAERS Safety Report 14342997 (Version 3)
Quarter: 2018Q3

REPORT INFORMATION
  Report Type: Spontaneous
  Country: US (occurrence: US)
  Receive Date: 20180102
  Receipt Date: 20180920
  Transmission Date: 20181010
  Serious: Yes (Hospitalization, Other)
  Sender: FDA-Public Use
  Company Number: US-DSJP-DSU-2017-142317

PATIENT

DRUGS (7)
  1. BENICAR [Suspect]
     Active Substance: OLMESARTAN MEDOXOMIL
     Indication: BLOOD PRESSURE MANAGEMENT
     Dosage: 40 MG, QD
     Route: 048
     Dates: start: 20060126, end: 20111231
  2. BENICAR [Suspect]
     Active Substance: OLMESARTAN MEDOXOMIL
     Dosage: 40 MG, QD
     Route: 048
     Dates: start: 20110107, end: 20150319
  3. TRIBENZOR [Suspect]
     Active Substance: AMLODIPINE BESYLATE\HYDROCHLOROTHIAZIDE\OLMESARTAN MEDOXOMIL
     Indication: PRODUCT USED FOR UNKNOWN INDICATION
     Dosage: 40?10?25 MG, QD
     Route: 048
     Dates: start: 20060126, end: 20150319
  4. BENICAR HCT [Suspect]
     Active Substance: HYDROCHLOROTHIAZIDE\OLMESARTAN MEDOXOMIL
     Dosage: 40?12.5 MG, QD
     Route: 048
     Dates: start: 20060126, end: 20150319
  5. BENICAR HCT [Suspect]
     Active Substance: HYDROCHLOROTHIAZIDE\OLMESARTAN MEDOXOMIL
     Indication: PRODUCT USED FOR UNKNOWN INDICATION
     Dosage: 40?25 MG, QD
     Route: 048
     Dates: start: 20060126, end: 20150319
  6. BENICAR [Suspect]
     Active Substance: OLMESARTAN MEDOXOMIL
     Dosage: 20 MG, QD
     Route: 048
     Dates: start: 20110101, end: 20110107
  7. AZOR [Suspect]
     Active Substance: AMLODIPINE BESYLATE\OLMESARTAN MEDOXOMIL
     Indication: HYPERTENSION
     Dosage: 10/40 MG, QD
     Route: 048

REACTIONS (5)
  - Chronic kidney disease [Unknown]
  - Sprue-like enteropathy [Recovering/Resolving]
  - Acute kidney injury [Recovered/Resolved]
  - Dyspepsia [Unknown]
  - Occult blood positive [Recovering/Resolving]

NARRATIVE: CASE EVENT DATE: 20101226
